FAERS Safety Report 7032102-8 (Version None)
Quarter: 2010Q4

REPORT INFORMATION
  Report Type: 
  Country: None (occurrence: None)
  Receive Date: 20101007
  Receipt Date: 20100928
  Transmission Date: 20110411
  Serious: Yes (Hospitalization)
  Sender: FDA-Public Use
  Company Number: SE-ASTRAZENECA-2010SE45675

PATIENT
  Age: 859 Month
  Sex: Female

DRUGS (12)
  1. NOLVADEX [Suspect]
     Indication: BREAST CANCER FEMALE
     Route: 048
     Dates: start: 20071001, end: 20100622
  2. RAMIPRIL [Concomitant]
  3. METOPROLOL ACTAVIS [Concomitant]
  4. ATARAX [Concomitant]
  5. SIMVASTATIN [Concomitant]
  6. AMLODIPIN ACCORD [Concomitant]
  7. ESIDRIX [Concomitant]
  8. ASPIRIN [Concomitant]
  9. ZOPIKLON MYLAN [Concomitant]
  10. LEDERSPAN [Concomitant]
     Indication: CRYSTAL ARTHROPATHY
     Dates: start: 20100101
  11. ALVEDON [Concomitant]
  12. TRADOLAN [Concomitant]
     Dosage: 2-3 TABLETS DAILY

REACTIONS (1)
  - DERMATITIS [None]
